FAERS Safety Report 12771905 (Version 2)
Quarter: 2016Q4

REPORT INFORMATION
  Report Type: Spontaneous
  Country: AU (occurrence: AU)
  Receive Date: 20160922
  Receipt Date: 20161004
  Transmission Date: 20170207
  Serious: Yes (Other)
  Sender: FDA-Public Use
  Company Number: AU-PFIZER INC-2016425239

PATIENT
  Age: 70 Year
  Sex: Female

DRUGS (2)
  1. LYRICA [Suspect]
     Active Substance: PREGABALIN
     Indication: PAIN
     Dosage: 25 MG, 2X/DAY (MORNING AN EVENING)
  2. ACTONEL [Concomitant]
     Active Substance: RISEDRONATE SODIUM
     Indication: BONE DISORDER
     Dosage: UNK

REACTIONS (2)
  - Drug ineffective [Unknown]
  - Intervertebral disc protrusion [Recovered/Resolved]
